FAERS Safety Report 8862786 (Version 2)
Quarter: 2012Q4

REPORT INFORMATION
  Report Type: 
  Country: JP (occurrence: JP)
  Receive Date: 20121026
  Receipt Date: 20121130
  Transmission Date: 20130627
  Serious: Yes (Death, Life-Threatening, Hospitalization)
  Sender: FDA-Public Use
  Company Number: JP-AMGEN-JPNCT2012068528

PATIENT
  Age: 92 Year
  Sex: Female
  Weight: 56 kg

DRUGS (30)
  1. DARBEPOETIN ALFA [Suspect]
     Indication: NEPHROGENIC ANAEMIA
     Dosage: 60 mug, qd
     Route: 058
     Dates: start: 20110228, end: 20110228
  2. DARBEPOETIN ALFA [Suspect]
     Dosage: 90 mug, qd
     Route: 058
     Dates: start: 20110307, end: 20110307
  3. DARBEPOETIN ALFA [Suspect]
     Dosage: 120 mug, qd
     Route: 058
     Dates: start: 20110404, end: 20110404
  4. DARBEPOETIN ALFA [Suspect]
     Dosage: 120 mug, qd
     Route: 058
     Dates: start: 20110418, end: 20110418
  5. CRAVIT [Suspect]
     Dosage: UNK UNK, UNK
     Route: 048
     Dates: end: 20110613
  6. PERSANTIN-L [Concomitant]
     Dosage: UNK
     Route: 048
  7. RENIVACE [Concomitant]
     Dosage: UNK
     Route: 048
  8. LORELCO [Concomitant]
     Dosage: UNK
     Route: 048
  9. WARFARIN [Concomitant]
     Dosage: UNK
     Route: 048
  10. ZYLORIC [Concomitant]
     Dosage: UNK
     Route: 048
  11. PARIET [Concomitant]
     Dosage: UNK
     Route: 048
  12. SODIUM BICARBONATE [Concomitant]
     Dosage: UNK
     Route: 048
  13. RASILEZ [Concomitant]
     Dosage: UNK
     Route: 048
  14. MICOMBI COMBINATION [Concomitant]
     Dosage: UNK
     Route: 048
  15. FOLIAMIN [Concomitant]
     Dosage: UNK
     Route: 048
  16. PYDOXAL [Concomitant]
     Dosage: UNK
     Route: 048
  17. METHYCOBAL [Concomitant]
     Dosage: UNK
     Route: 048
  18. CINAL [Concomitant]
     Dosage: UNK UNK, UNK
     Route: 048
  19. MICARDIS [Concomitant]
     Dosage: UNK
     Route: 048
  20. ADALAT CR [Concomitant]
     Dosage: UNK
     Route: 048
  21. ATELEC [Concomitant]
     Dosage: UNK
     Route: 048
  22. ZEFIX [Concomitant]
     Dosage: UNK UNK, UNK
     Route: 048
  23. FRANDOL S [Concomitant]
     Dosage: UNK UNK, UNK
     Route: 062
  24. ARTIST [Concomitant]
     Dosage: UNK UNK, UNK
     Route: 048
  25. ZOSYN [Concomitant]
     Dosage: UNK
     Route: 042
  26. TIENAM [Concomitant]
     Dosage: UNK UNK, UNK
     Route: 065
  27. BARACLUDE [Concomitant]
     Dosage: UNK
     Route: 048
  28. ATARAX-P [Concomitant]
     Dosage: UNK
     Route: 048
  29. VANCOMYCIN [Concomitant]
     Dosage: UNK
     Route: 041
  30. DOPAMINE [Concomitant]
     Dosage: UNK
     Route: 041

REACTIONS (6)
  - Bone marrow failure [Not Recovered/Not Resolved]
  - Cardiac failure [Fatal]
  - Pyelonephritis acute [Recovered/Resolved]
  - Intervertebral discitis [Recovered/Resolved]
  - Diarrhoea [Recovered/Resolved]
  - Gastroenteritis staphylococcal [Recovered/Resolved]
